FAERS Safety Report 4457173-4 (Version None)
Quarter: 2004Q3

REPORT INFORMATION
  Report Type: 
  Country: None (occurrence: None)
  Receive Date: 20040921
  Receipt Date: 20040915
  Transmission Date: 20050211
  Serious: Yes (Other)
  Sender: FDA-Public Use
  Company Number: HQWYE098016SEP04

PATIENT
  Sex: Female

DRUGS (1)
  1. PREMARIN [Suspect]
     Indication: OESTROGEN REPLACEMENT THERAPY

REACTIONS (4)
  - ASTHMA [None]
  - GALLBLADDER DISORDER [None]
  - PAIN IN EXTREMITY [None]
  - THYROID DISORDER [None]
